FAERS Safety Report 5781950-0 (Version None)
Quarter: 2008Q2

REPORT INFORMATION
  Report Type: 
  Country: None (occurrence: None)
  Receive Date: 20080623
  Receipt Date: 20080612
  Transmission Date: 20081010
  Serious: Yes (Death)
  Sender: FDA-Public Use
  Company Number: B0525896A

PATIENT
  Age: 63 Year
  Sex: Female

DRUGS (2)
  1. TYKERB [Suspect]
     Dosage: 5TAB PER DAY
     Route: 065
     Dates: start: 20070915, end: 20080611
  2. HERCEPTIN [Concomitant]
     Route: 065

REACTIONS (1)
  - DISEASE PROGRESSION [None]
